FAERS Safety Report 4602186-2 (Version None)
Quarter: 2005Q2

REPORT INFORMATION
  Report Type: 
  Country: None (occurrence: None)
  Receive Date: 20050215
  Receipt Date: 20040928
  Transmission Date: 20051028
  Serious: Yes (Hospitalization)
  Sender: FDA-Public Use
  Company Number: MC200400629

PATIENT
  Age: 58 Year
  Sex: Male
  Weight: 93 kg

DRUGS (4)
  1. ANGIOMAX [Suspect]
     Dosage: 67.5 MG, BOLUS, IV BOLUS; 10 ML/HR, INTRAVENOUS FOR 40 MIN
     Route: 040
     Dates: start: 20040927
  2. ANGIOMAX [Suspect]
     Dosage: 67.5 MG, BOLUS, IV BOLUS; 10 ML/HR, INTRAVENOUS FOR 40 MIN
     Route: 040
     Dates: start: 20040927
  3. PLAVIX [Concomitant]
  4. ACETYLSALICYLIC ACID SRT [Concomitant]

REACTIONS (1)
  - HAEMORRHAGE [None]
